FAERS Safety Report 21484048 (Version 31)
Quarter: 2025Q4

REPORT INFORMATION
  Report Type: Report from Study
  Country: CA (occurrence: CA)
  Receive Date: 20221020
  Receipt Date: 20251110
  Transmission Date: 20260117
  Serious: Yes (Other)
  Sender: ROCHE
  Company Number: CA-ROCHE-2351549

PATIENT
  Age: 65 Year
  Sex: Male
  Weight: 66 kg

DRUGS (65)
  1. PERJETA [Suspect]
     Active Substance: PERTUZUMAB
     Indication: Gastrooesophageal cancer
     Route: 042
     Dates: start: 20190703, end: 20190703
  2. PERJETA [Suspect]
     Active Substance: PERTUZUMAB
     Route: 042
  3. PERJETA [Suspect]
     Active Substance: PERTUZUMAB
     Route: 042
  4. PERJETA [Suspect]
     Active Substance: PERTUZUMAB
     Route: 042
  5. PERJETA [Suspect]
     Active Substance: PERTUZUMAB
     Route: 042
  6. PERJETA [Suspect]
     Active Substance: PERTUZUMAB
     Route: 042
  7. PERJETA [Suspect]
     Active Substance: PERTUZUMAB
     Route: 042
  8. PERJETA [Suspect]
     Active Substance: PERTUZUMAB
     Route: 042
  9. PERJETA [Suspect]
     Active Substance: PERTUZUMAB
     Route: 042
  10. PERJETA [Suspect]
     Active Substance: PERTUZUMAB
     Route: 042
  11. PERJETA [Suspect]
     Active Substance: PERTUZUMAB
     Route: 042
  12. PERJETA [Suspect]
     Active Substance: PERTUZUMAB
     Route: 042
  13. PERJETA [Suspect]
     Active Substance: PERTUZUMAB
     Route: 042
  14. PERJETA [Suspect]
     Active Substance: PERTUZUMAB
     Route: 042
  15. PERJETA [Suspect]
     Active Substance: PERTUZUMAB
     Route: 042
  16. PERJETA [Suspect]
     Active Substance: PERTUZUMAB
     Route: 042
  17. PERJETA [Suspect]
     Active Substance: PERTUZUMAB
     Route: 042
  18. PERJETA [Suspect]
     Active Substance: PERTUZUMAB
     Route: 042
  19. PERJETA [Suspect]
     Active Substance: PERTUZUMAB
     Route: 042
  20. PERJETA [Suspect]
     Active Substance: PERTUZUMAB
     Route: 042
  21. PERJETA [Suspect]
     Active Substance: PERTUZUMAB
     Route: 042
  22. PERJETA [Suspect]
     Active Substance: PERTUZUMAB
     Route: 042
     Dates: start: 20190703, end: 20190703
  23. PERJETA [Suspect]
     Active Substance: PERTUZUMAB
     Route: 042
     Dates: start: 20190724, end: 20200311
  24. PERJETA [Suspect]
     Active Substance: PERTUZUMAB
     Route: 042
     Dates: start: 20190703, end: 20200311
  25. PERJETA [Suspect]
     Active Substance: PERTUZUMAB
     Route: 042
     Dates: start: 20190703
  26. PERJETA [Suspect]
     Active Substance: PERTUZUMAB
     Route: 042
  27. PERJETA [Suspect]
     Active Substance: PERTUZUMAB
     Route: 042
  28. PERJETA [Suspect]
     Active Substance: PERTUZUMAB
     Route: 065
  29. HERCEPTIN [Concomitant]
     Active Substance: TRASTUZUMAB
     Indication: Gastrooesophageal cancer
     Route: 042
     Dates: start: 20190703, end: 20190703
  30. HERCEPTIN [Concomitant]
     Active Substance: TRASTUZUMAB
     Route: 042
     Dates: start: 20190724, end: 20200311
  31. HERCEPTIN [Concomitant]
     Active Substance: TRASTUZUMAB
     Route: 042
     Dates: start: 20200330, end: 20200330
  32. HERCEPTIN [Concomitant]
     Active Substance: TRASTUZUMAB
     Route: 042
     Dates: start: 20200422, end: 20200422
  33. HERCEPTIN [Concomitant]
     Active Substance: TRASTUZUMAB
     Route: 042
     Dates: start: 20200513, end: 20220304
  34. HERCEPTIN [Concomitant]
     Active Substance: TRASTUZUMAB
     Route: 042
     Dates: start: 20220325, end: 20230809
  35. HERCEPTIN [Concomitant]
     Active Substance: TRASTUZUMAB
     Route: 042
     Dates: start: 20230828, end: 20241205
  36. HERCEPTIN [Concomitant]
     Active Substance: TRASTUZUMAB
     Dosage: DOSING UNKNOWN - COMING OFF JACOB TRIAL. PER ENROLLMENT COMPASSIONATE DRUG FROM ROCHE SINCE 2013
     Route: 042
     Dates: end: 20190702
  37. HERCEPTIN [Concomitant]
     Active Substance: TRASTUZUMAB
     Route: 042
     Dates: start: 20200311
  38. HERCEPTIN [Concomitant]
     Active Substance: TRASTUZUMAB
     Route: 042
     Dates: start: 20200810
  39. HERCEPTIN [Concomitant]
     Active Substance: TRASTUZUMAB
     Route: 042
  40. HERCEPTIN [Concomitant]
     Active Substance: TRASTUZUMAB
     Dosage: UNKNOWN PATIENT CAME OFF OF JACOB TRIAL (JCC)
     Route: 042
  41. HERCEPTIN [Concomitant]
     Active Substance: TRASTUZUMAB
     Route: 042
  42. HERCEPTIN [Concomitant]
     Active Substance: TRASTUZUMAB
     Route: 042
  43. HERCEPTIN [Concomitant]
     Active Substance: TRASTUZUMAB
     Route: 042
  44. HERCEPTIN [Concomitant]
     Active Substance: TRASTUZUMAB
     Route: 042
  45. HERCEPTIN [Concomitant]
     Active Substance: TRASTUZUMAB
     Route: 042
  46. HERCEPTIN [Concomitant]
     Active Substance: TRASTUZUMAB
     Route: 042
  47. HERCEPTIN [Concomitant]
     Active Substance: TRASTUZUMAB
     Route: 042
  48. HERCEPTIN [Concomitant]
     Active Substance: TRASTUZUMAB
     Route: 042
  49. HERCEPTIN [Concomitant]
     Active Substance: TRASTUZUMAB
     Route: 042
  50. HERCEPTIN [Concomitant]
     Active Substance: TRASTUZUMAB
     Route: 042
  51. HERCEPTIN [Concomitant]
     Active Substance: TRASTUZUMAB
     Route: 042
  52. HERCEPTIN [Concomitant]
     Active Substance: TRASTUZUMAB
     Route: 042
  53. HERCEPTIN [Concomitant]
     Active Substance: TRASTUZUMAB
     Route: 042
  54. HERCEPTIN [Concomitant]
     Active Substance: TRASTUZUMAB
     Route: 042
  55. HERCEPTIN [Concomitant]
     Active Substance: TRASTUZUMAB
     Route: 042
  56. HERCEPTIN [Concomitant]
     Active Substance: TRASTUZUMAB
     Route: 042
  57. HERCEPTIN [Concomitant]
     Active Substance: TRASTUZUMAB
     Route: 042
  58. HERCEPTIN [Concomitant]
     Active Substance: TRASTUZUMAB
     Route: 042
  59. HERCEPTIN [Concomitant]
     Active Substance: TRASTUZUMAB
     Route: 042
  60. HERCEPTIN [Concomitant]
     Active Substance: TRASTUZUMAB
     Route: 042
     Dates: start: 20230828, end: 20241205
  61. HERCEPTIN [Concomitant]
     Active Substance: TRASTUZUMAB
     Route: 042
     Dates: start: 20241223
  62. ACETAMINOPHEN [Concomitant]
     Active Substance: ACETAMINOPHEN
     Indication: Premedication
     Route: 048
     Dates: start: 20190703
  63. FAMCICLOVIR [Concomitant]
     Active Substance: FAMCICLOVIR
     Indication: Rash
     Dates: start: 2020
  64. ESOMEPRAZOLE [Concomitant]
     Active Substance: ESOMEPRAZOLE
  65. NEXIUM [Concomitant]
     Active Substance: ESOMEPRAZOLE MAGNESIUM

REACTIONS (16)
  - Pneumonia [Unknown]
  - Heart rate decreased [Unknown]
  - Blood pressure diastolic abnormal [Unknown]
  - Blood pressure diastolic decreased [Unknown]
  - Oxygen saturation decreased [Unknown]
  - Weight decreased [Unknown]
  - Blood pressure systolic increased [Unknown]
  - Blood pressure systolic abnormal [Unknown]
  - Weight increased [Unknown]
  - Decreased appetite [Recovered/Resolved]
  - Influenza like illness [Unknown]
  - Pyrexia [Recovered/Resolved]
  - Off label use [Unknown]
  - Cough [Recovered/Resolved]
  - Oropharyngeal pain [Recovered/Resolved]
  - Nasal congestion [Recovered/Resolved]

NARRATIVE: CASE EVENT DATE: 20190703
